FAERS Safety Report 8580070-X (Version None)
Quarter: 2012Q3

REPORT INFORMATION
  Report Type: 
  Country: None (occurrence: None)
  Receive Date: 20120808
  Receipt Date: 20120803
  Transmission Date: 20120928
  Serious: Yes (Other)
  Sender: FDA-Public Use
  Company Number: PHHY2012FR067806

PATIENT
  Age: 53 Year
  Sex: Female

DRUGS (3)
  1. METRONIDAZOLE [Suspect]
  2. SPIRAMYCIN [Suspect]
  3. AZITHROMYCIN [Suspect]

REACTIONS (3)
  - DRUG RASH WITH EOSINOPHILIA AND SYSTEMIC SYMPTOMS [None]
  - SWELLING FACE [None]
  - RASH [None]
